FAERS Safety Report 24563960 (Version 3)
Quarter: 2025Q1

REPORT INFORMATION
  Report Type: Spontaneous
  Country: JP (occurrence: JP)
  Receive Date: 20241030
  Receipt Date: 20250127
  Transmission Date: 20250409
  Serious: Yes (Hospitalization, Other)
  Sender: BOEHRINGER INGELHEIM
  Company Number: JP-NBI-2024-BI-049147

PATIENT
  Age: 82 Year
  Sex: Male

DRUGS (2)
  1. OFEV [Suspect]
     Active Substance: NINTEDANIB
     Indication: Idiopathic pulmonary fibrosis
     Dates: start: 20240820, end: 20240902
  2. OFEV [Suspect]
     Active Substance: NINTEDANIB

REACTIONS (10)
  - Cerebral infarction [Recovered/Resolved]
  - Idiopathic pulmonary fibrosis [Not Recovered/Not Resolved]
  - Respiratory arrest [Not Recovered/Not Resolved]
  - Decreased appetite [Recovering/Resolving]
  - Constipation [Recovered/Resolved]
  - Dizziness [Recovered/Resolved]
  - Weight decreased [Recovered/Resolved]
  - Eczema [Not Recovered/Not Resolved]
  - Impaired healing [Recovered/Resolved]
  - Weight decreased [Not Recovered/Not Resolved]

NARRATIVE: CASE EVENT DATE: 20241218
